FAERS Safety Report 14422355 (Version 1)
Quarter: 2018Q1

REPORT INFORMATION
  Report Type: Spontaneous
  Country: US (occurrence: US)
  Receive Date: 20180123
  Receipt Date: 20180123
  Transmission Date: 20180509
  Serious: Yes (Hospitalization)
  Sender: FDA-Public Use
  Company Number: US-SUN PHARMACEUTICAL INDUSTRIES LTD-2018US-160892

PATIENT
  Age: 35 Year
  Sex: Male

DRUGS (2)
  1. OXYCODONE [Suspect]
     Active Substance: OXYCODONE
     Indication: ABDOMINAL PAIN
     Route: 065
  2. TRAMADOL. [Suspect]
     Active Substance: TRAMADOL
     Indication: ABDOMINAL PAIN
     Route: 065

REACTIONS (3)
  - Constipation [Unknown]
  - Infectious colitis [Unknown]
  - Irritable bowel syndrome [Unknown]
